FAERS Safety Report 9223581 (Version 1)
Quarter: 2013Q2

REPORT INFORMATION
  Report Type: Spontaneous
  Country: US (occurrence: US)
  Receive Date: 20130410
  Receipt Date: 20130410
  Transmission Date: 20140414
  Serious: No
  Sender: FDA-Public Use
  Company Number: US-BAYER-2013-045530

PATIENT
  Sex: Female

DRUGS (4)
  1. ALEVE CAPLET [Suspect]
     Indication: UTERINE SPASM
     Dosage: 1 DF, UNK
  2. ALEVE CAPLET [Suspect]
     Indication: UTERINE SPASM
     Dosage: 2 DF, UNK
  3. FLEXI T [Concomitant]
  4. ANTIBIOTICS [Concomitant]

REACTIONS (1)
  - Drug ineffective [None]
